FAERS Safety Report 4732963-9 (Version None)
Quarter: 2005Q3

REPORT INFORMATION
  Report Type: 
  Country: None (occurrence: None)
  Receive Date: 20050802
  Receipt Date: 20050802
  Transmission Date: 20060218
  Serious: Yes (Hospitalization)
  Sender: FDA-Public Use
  Company Number: None

PATIENT
  Age: 36 Year
  Sex: Female
  Weight: 74 kg

DRUGS (3)
  1. MOXIFLOXACIN HCL [Suspect]
     Indication: SINUSITIS
     Dosage: PO OTO   1 DOSE 5/12
     Route: 048
     Dates: start: 20050512
  2. EPINEPHRINE [Suspect]
     Dosage: 0.2 ML IV   1 DOSE
     Route: 042
     Dates: start: 20050512
  3. AVELOX [Concomitant]

REACTIONS (6)
  - CHEST DISCOMFORT [None]
  - DYSPNOEA [None]
  - HEADACHE [None]
  - HYPERSENSITIVITY [None]
  - INCORRECT ROUTE OF DRUG ADMINISTRATION [None]
  - VENTRICULAR TACHYCARDIA [None]
